FAERS Safety Report 9116140 (Version 1)
Quarter: 2013Q1

REPORT INFORMATION
  Report Type: Spontaneous
  Country: US (occurrence: US)
  Receive Date: 20130225
  Receipt Date: 20130225
  Transmission Date: 20140127
  Serious: No
  Sender: FDA-Public Use
  Company Number: US-ENDO PHARMACEUTICALS INC.-FORT20120243

PATIENT
  Age: 60 Year
  Sex: Male

DRUGS (4)
  1. FORTESTA [Suspect]
     Indication: BLOOD TESTOSTERONE DECREASED
     Route: 061
     Dates: start: 20121114
  2. ATENOLOL [Concomitant]
     Indication: VENTRICULAR EXTRASYSTOLES
     Route: 048
  3. PRAVASTATIN [Concomitant]
     Indication: BLOOD CHOLESTEROL INCREASED
     Dosage: UNKNOWN
     Route: 048
  4. PAXIL [Concomitant]
     Indication: PRODUCT USED FOR UNKNOWN INDICATION
     Route: 048

REACTIONS (3)
  - Tremor [Not Recovered/Not Resolved]
  - Irritability [Not Recovered/Not Resolved]
  - Dizziness [Not Recovered/Not Resolved]
